FAERS Safety Report 17038822 (Version 1)
Quarter: 2019Q4

REPORT INFORMATION
  Report Type: Report from Study
  Country: US (occurrence: US)
  Receive Date: 20191115
  Receipt Date: 20191115
  Transmission Date: 20200122
  Serious: Yes (Hospitalization)
  Sender: FDA-Public Use
  Company Number: US-ACTELION-A-US2019-196783

PATIENT
  Age: 57 Year
  Sex: Female
  Weight: 72.56 kg

DRUGS (4)
  1. OPSUMIT [Suspect]
     Active Substance: MACITENTAN
     Indication: PULMONARY ARTERIAL HYPERTENSION
     Dosage: 10 MG, QD
     Route: 048
     Dates: start: 20190719
  2. TADALAFIL. [Concomitant]
     Active Substance: TADALAFIL
  3. ELIQUIS [Concomitant]
     Active Substance: APIXABAN
  4. TYVASO [Suspect]
     Active Substance: TREPROSTINIL
     Indication: PRODUCT USED FOR UNKNOWN INDICATION
     Dosage: 3 BREATHS/MIN, PER MIN
     Route: 065

REACTIONS (8)
  - Nasopharyngitis [Unknown]
  - Dyspnoea [Unknown]
  - Pneumonia [Unknown]
  - Cough [Unknown]
  - Flushing [Unknown]
  - Productive cough [Unknown]
  - Hyperaesthesia [Recovered/Resolved]
  - Headache [Unknown]

NARRATIVE: CASE EVENT DATE: 20191008
